FAERS Safety Report 6398495-X (Version None)
Quarter: 2009Q4

REPORT INFORMATION
  Report Type: 
  Country: None (occurrence: None)
  Receive Date: 20091013
  Receipt Date: 20091007
  Transmission Date: 20100525
  Serious: Yes (Other)
  Sender: FDA-Public Use
  Company Number: B0597473A

PATIENT
  Sex: Female

DRUGS (1)
  1. VALTREX [Suspect]
     Indication: GENITAL HERPES
     Dosage: 100MG PER DAY

REACTIONS (3)
  - APGAR SCORE LOW [None]
  - INTRAUTERINE INFECTION [None]
  - PNEUMONIA [None]
